FAERS Safety Report 6673051-4 (Version None)
Quarter: 2010Q2

REPORT INFORMATION
  Report Type: 
  Country: None (occurrence: None)
  Receive Date: 20100408
  Receipt Date: 20100331
  Transmission Date: 20101027
  Serious: Yes (Other)
  Sender: FDA-Public Use
  Company Number: PHHY2010GB19869

PATIENT
  Sex: Female

DRUGS (1)
  1. CLOZARIL [Suspect]
     Indication: SCHIZOPHRENIA
     Dosage: 100 MG, QD
     Dates: start: 19991004

REACTIONS (2)
  - BLOOD PRESSURE INCREASED [None]
  - ELECTROCARDIOGRAM QT PROLONGED [None]
